FAERS Safety Report 8933034 (Version 1)
Quarter: 2013Q1

REPORT INFORMATION
  Report Type: Spontaneous
  Country: US (occurrence: None)
  Receive Date: 20121127
  Receipt Date: 20121127
  Transmission Date: 20140127
  Serious: Yes (Hospitalization)
  Sender: FDA-Public Use
  Company Number: None

PATIENT
  Age: 55 Year
  Sex: Female

DRUGS (10)
  1. RUXOLITINIB [Suspect]
     Indication: BREAST CANCER
     Route: 048
     Dates: start: 20121106, end: 20121116
  2. AMLODIPINE [Concomitant]
  3. METFORMIN [Concomitant]
  4. VITAMINS [Suspect]
  5. NEXIUM [Suspect]
  6. LIPITOR [Suspect]
  7. GLUCOSAMINE [Concomitant]
  8. ASA [Concomitant]
  9. CALCIUM [Concomitant]
  10. VITAMIN D [Concomitant]

REACTIONS (3)
  - Headache [None]
  - Arteriovenous malformation [None]
  - Haemorrhage [None]
